FAERS Safety Report 5488395-1 (Version None)
Quarter: 2007Q4

REPORT INFORMATION
  Report Type: 
  Country: None (occurrence: None)
  Receive Date: 20071017
  Receipt Date: 20071004
  Transmission Date: 20080405
  Serious: Yes (Hospitalization)
  Sender: FDA-Public Use
  Company Number: US-SOLVAY-00207034366

PATIENT
  Age: 871 Month
  Sex: Male

DRUGS (2)
  1. CHOLESTEROL MEDICATION [Concomitant]
     Indication: BLOOD CHOLESTEROL INCREASED
     Dosage: DAILY DOSE:  UNKNOWN
     Route: 048
  2. ANDROGEL [Suspect]
     Indication: PITUITARY TUMOUR
     Dosage: DAILY DOSE:  UNKNOWN
     Route: 062
     Dates: start: 20050101

REACTIONS (2)
  - BLOOD PRESSURE DECREASED [None]
  - INFLUENZA [None]
